FAERS Safety Report 12902980 (Version 1)
Quarter: 2016Q4

REPORT INFORMATION
  Report Type: Spontaneous
  Country: CN (occurrence: CN)
  Receive Date: 20161102
  Receipt Date: 20161102
  Transmission Date: 20170207
  Serious: Yes (Other)
  Sender: FDA-Public Use
  Company Number: CN-ROCHE-1849141

PATIENT
  Age: 35 Year
  Sex: Male
  Weight: 72.5 kg

DRUGS (1)
  1. PEGASYS [Suspect]
     Active Substance: PEGINTERFERON ALFA-2A
     Indication: CHRONIC HEPATITIS B
     Route: 058
     Dates: start: 20160616, end: 20160616

REACTIONS (1)
  - Tinnitus [Recovered/Resolved]

NARRATIVE: CASE EVENT DATE: 20160617
